FAERS Safety Report 12965042 (Version 2)
Quarter: 2016Q4

REPORT INFORMATION
  Report Type: Spontaneous
  Country: FI (occurrence: FI)
  Receive Date: 20161122
  Receipt Date: 20161216
  Transmission Date: 20170207
  Serious: Yes (Hospitalization, Disabling)
  Sender: FDA-Public Use
  Company Number: FI-PFIZER INC-2016537000

PATIENT
  Age: 71 Year
  Sex: Female

DRUGS (11)
  1. EMCONCOR CHF [Concomitant]
     Indication: ATRIAL FIBRILLATION
     Dosage: 1.25 MG, 1X/DAY
     Route: 048
  2. VALAVIR /01269702/ [Concomitant]
     Indication: PROPHYLAXIS
     Dosage: 500 MG, 1 OR 2X2
     Route: 048
  3. SERONIL [Concomitant]
     Active Substance: FLUOXETINE HYDROCHLORIDE
     Indication: DEPRESSED MOOD
     Dosage: 20 MG, 1X/DAY
     Route: 048
     Dates: start: 1997
  4. MAREVAN [Concomitant]
     Active Substance: WARFARIN SODIUM
     Indication: ATRIAL FIBRILLATION
     Dosage: 1.5 MG, 1X/DAY
     Route: 048
     Dates: start: 1997
  5. TOLVON [Concomitant]
     Active Substance: MIANSERIN
     Indication: DEPRESSED MOOD
     Dosage: 10 MG, 1X/DAY
     Route: 048
     Dates: start: 1998
  6. LYRICA [Suspect]
     Active Substance: PREGABALIN
     Indication: POST HERPETIC NEURALGIA
     Dosage: 25 MG, 1-3 TIMES DAILY
     Route: 048
     Dates: start: 20141030, end: 20161125
  7. TAMBOCOR [Suspect]
     Active Substance: FLECAINIDE ACETATE
     Indication: ARRHYTHMIA
     Dosage: 200 MG, 1X/DAY
     Route: 048
  8. MAREVAN [Concomitant]
     Active Substance: WARFARIN SODIUM
     Indication: THROMBOSIS PROPHYLAXIS
  9. ALENDRONAT [Concomitant]
     Active Substance: ALENDRONATE SODIUM
     Indication: OSTEOPOROSIS
     Dosage: 70 MG, WEEKLY
     Route: 048
     Dates: start: 2016
  10. ZOPINOX [Concomitant]
     Active Substance: ZOPICLONE
     Indication: INSOMNIA
     Dosage: 3.75 MG, 1X/DAY
     Route: 048
     Dates: start: 1998
  11. PANADOL [Concomitant]
     Active Substance: ACETAMINOPHEN
     Indication: PAIN
     Dosage: 1 G, 1-3X DAY
     Route: 048

REACTIONS (3)
  - Nystagmus [Unknown]
  - Posterior capsule opacification [Recovered/Resolved]
  - Condition aggravated [Not Recovered/Not Resolved]

NARRATIVE: CASE EVENT DATE: 2016
